FAERS Safety Report 5695368-2 (Version None)
Quarter: 2008Q2

REPORT INFORMATION
  Report Type: 
  Country: None (occurrence: None)
  Receive Date: 20080403
  Receipt Date: 20080328
  Transmission Date: 20081010
  Serious: Yes (Other)
  Sender: FDA-Public Use
  Company Number: A0700205A

PATIENT
  Age: 80 Year
  Sex: Male

DRUGS (1)
  1. UREA PEROXIDE [Suspect]
     Indication: DRUG USE FOR UNKNOWN INDICATION
     Dosage: EAR DROPS

REACTIONS (3)
  - CERUMEN IMPACTION [None]
  - DEAFNESS UNILATERAL [None]
  - DIZZINESS [None]
